FAERS Safety Report 23215612 (Version 1)
Quarter: 2023Q4

REPORT INFORMATION
  Report Type: Spontaneous
  Country: CN (occurrence: CN)
  Receive Date: 20231122
  Receipt Date: 20231122
  Transmission Date: 20240109
  Serious: Yes (Hospitalization)
  Sender: FDA-Public Use
  Company Number: CN-002147023-NVSC2023CN248181

PATIENT
  Age: 65 Year
  Sex: Female

DRUGS (2)
  1. GLIVEC [Suspect]
     Active Substance: IMATINIB MESYLATE
     Indication: Targeted cancer therapy
     Dosage: 400 MG, BID
     Route: 048
     Dates: start: 20230915, end: 20231117
  2. GLIVEC [Suspect]
     Active Substance: IMATINIB MESYLATE
     Indication: Gastrointestinal stromal tumour

REACTIONS (1)
  - Eyelid oedema [Recovering/Resolving]

NARRATIVE: CASE EVENT DATE: 20231020
